FAERS Safety Report 17433391 (Version 1)
Quarter: 2020Q1

REPORT INFORMATION
  Report Type: Spontaneous
  Country: IT (occurrence: IT)
  Receive Date: 20200219
  Receipt Date: 20200219
  Transmission Date: 20200409
  Serious: Yes (Hospitalization)
  Sender: FDA-Public Use
  Company Number: IT-TEVA-2020-IT-1187721

PATIENT
  Age: 91 Year
  Sex: Male

DRUGS (7)
  1. ENOXAPARIN [Concomitant]
     Active Substance: ENOXAPARIN
  2. LEVOFLOXACIN. [Suspect]
     Active Substance: LEVOFLOXACIN
     Indication: INFECTION
     Dosage: 500MG
     Route: 048
     Dates: start: 20200116, end: 20200118
  3. METFORMIN [Concomitant]
     Active Substance: METFORMIN HYDROCHLORIDE
     Dosage: 3 DOSAGE FORMS
     Route: 048
  4. OLANZAPINE. [Concomitant]
     Active Substance: OLANZAPINE
  5. AVODART [Concomitant]
     Active Substance: DUTASTERIDE
  6. SOLUZIONE FISIOLOGICA SALF [Concomitant]
  7. OMEPRAZEN 20 MG CAPSULE RIGIDE GASTRORESISTENTI [Concomitant]

REACTIONS (1)
  - Epilepsy [Unknown]

NARRATIVE: CASE EVENT DATE: 20200118
